FAERS Safety Report 25190686 (Version 1)
Quarter: 2025Q2

REPORT INFORMATION
  Report Type: Spontaneous
  Country: US (occurrence: US)
  Receive Date: 20250411
  Receipt Date: 20250411
  Transmission Date: 20250717
  Serious: No
  Sender: BAUSCH AND LOMB
  Company Number: US-BAUSCHBL-2025BNL005990

PATIENT
  Age: 37 Year

DRUGS (2)
  1. LUMIFY [Suspect]
     Active Substance: BRIMONIDINE TARTRATE
     Indication: Product used for unknown indication
     Route: 065
  2. LUMIFY [Suspect]
     Active Substance: BRIMONIDINE TARTRATE

REACTIONS (3)
  - Vision blurred [Unknown]
  - Dry eye [Unknown]
  - Inappropriate schedule of product administration [Unknown]
